FAERS Safety Report 11901406 (Version 2)
Quarter: 2016Q1

REPORT INFORMATION
  Report Type: Spontaneous
  Country: IL (occurrence: IL)
  Receive Date: 20160108
  Receipt Date: 20160126
  Transmission Date: 20160526
  Serious: Yes (Death, Hospitalization)
  Sender: FDA-Public Use
  Company Number: IL-BAYER-2016-003296

PATIENT
  Age: 78 Year
  Sex: Male

DRUGS (1)
  1. XOFIGO [Suspect]
     Active Substance: RADIUM RA-223 DICHLORIDE
     Indication: PROSTATE CANCER
     Dosage: UNK
     Route: 042
     Dates: start: 20151202, end: 20151202

REACTIONS (3)
  - Pyrexia [None]
  - Stupor [Fatal]
  - Infection [Fatal]

NARRATIVE: CASE EVENT DATE: 20160105
